FAERS Safety Report 9879885 (Version 2)
Quarter: 2014Q1

REPORT INFORMATION
  Report Type: Spontaneous
  Country: US (occurrence: US)
  Receive Date: 20140206
  Receipt Date: 20140206
  Transmission Date: 20141002
  Serious: Yes (Disabling)
  Sender: FDA-Public Use
  Company Number: US-GE HEALTHCARE MEDICAL DIAGNOSTICS-OSCN-PR-0910S-0441

PATIENT
  Age: 50 Year
  Sex: Female

DRUGS (9)
  1. OMNISCAN [Suspect]
     Indication: ANEURYSM
     Route: 042
     Dates: start: 20040223, end: 20040223
  2. OMNISCAN [Suspect]
     Indication: VENOUS PRESSURE INCREASED
     Route: 042
     Dates: start: 20050125, end: 20050125
  3. OMNISCAN [Suspect]
     Indication: VENOUS PRESSURE
     Route: 042
     Dates: start: 20051122, end: 20051122
  4. OMNISCAN [Suspect]
     Indication: VENOUS PRESSURE INCREASED
     Route: 042
     Dates: start: 20060613, end: 20060613
  5. OXYCONTIN [Concomitant]
  6. EPOGEN [Concomitant]
  7. AMGEN [Concomitant]
  8. LIPITOR [Concomitant]
  9. TRICOR [Concomitant]

REACTIONS (1)
  - Nephrogenic systemic fibrosis [Not Recovered/Not Resolved]
